FAERS Safety Report 7343126-5 (Version None)
Quarter: 2011Q1

REPORT INFORMATION
  Report Type: 
  Country: None (occurrence: None)
  Receive Date: 20110310
  Receipt Date: 20110304
  Transmission Date: 20110831
  Serious: No
  Sender: FDA-Public Use
  Company Number: US-PFIZER INC-2011048124

PATIENT
  Sex: Female

DRUGS (2)
  1. CORTISONE [Concomitant]
  2. NORVASC [Suspect]
     Indication: HYPERTENSION
     Dosage: UNK

REACTIONS (3)
  - DRUG INEFFECTIVE [None]
  - GASTRIC DILATATION [None]
  - GASTRITIS [None]
